FAERS Safety Report 5502466-2 (Version None)
Quarter: 2007Q4

REPORT INFORMATION
  Report Type: 
  Country: None (occurrence: None)
  Receive Date: 20071030
  Receipt Date: 20071018
  Transmission Date: 20080405
  Serious: Yes (Other)
  Sender: FDA-Public Use
  Company Number: FR-PFIZER INC-2007087720

PATIENT
  Age: 44 Year
  Sex: Female

DRUGS (2)
  1. CHAMPIX [Suspect]
     Indication: SMOKING CESSATION THERAPY
     Route: 048
  2. AMMONIA [Interacting]

REACTIONS (4)
  - DRUG INTERACTION [None]
  - HEADACHE [None]
  - NAUSEA [None]
  - THERMAL BURN [None]
